FAERS Safety Report 8203917-5 (Version None)
Quarter: 2012Q1

REPORT INFORMATION
  Report Type: 
  Country: None (occurrence: None)
  Receive Date: 20120313
  Receipt Date: 20120306
  Transmission Date: 20120608
  Serious: Yes (Hospitalization)
  Sender: FDA-Public Use
  Company Number: US-BAYER-2012-022882

PATIENT
  Age: 39 Year
  Sex: Female
  Weight: 58.957 kg

DRUGS (5)
  1. FLUCONAZOLE [Concomitant]
     Dosage: 150 MG,
     Route: 048
  2. YAZ [Suspect]
     Dosage: UNK
     Dates: start: 20080101, end: 20090204
  3. SYNTHROID [Concomitant]
     Dosage: 0.075 MG, QD
     Route: 048
  4. SUMATRIPTAN [Concomitant]
     Indication: HEADACHE
     Dosage: 100 MG,
     Route: 048
  5. CHANTIX [Concomitant]
     Dosage: 1 MG, QD
     Route: 048

REACTIONS (1)
  - DEEP VEIN THROMBOSIS [None]
